FAERS Safety Report 21132145 (Version 2)
Quarter: 2022Q3

REPORT INFORMATION
  Report Type: Spontaneous
  Country: CA (occurrence: CA)
  Receive Date: 20220726
  Receipt Date: 20220912
  Transmission Date: 20221027
  Serious: Yes (Other)
  Sender: FDA-Public Use
  Company Number: CA-GLAXOSMITHKLINE-CACH2022025757

PATIENT

DRUGS (1)
  1. ADVIL [Suspect]
     Active Substance: IBUPROFEN
     Indication: Migraine
     Dosage: UNK
     Dates: start: 20220707, end: 20220707

REACTIONS (2)
  - Foreign body in throat [Unknown]
  - Product use complaint [Unknown]

NARRATIVE: CASE EVENT DATE: 20220707
